FAERS Safety Report 4378375-1 (Version None)
Quarter: 2004Q2

REPORT INFORMATION
  Report Type: 
  Country: None (occurrence: None)
  Receive Date: 20040616
  Receipt Date: 20040519
  Transmission Date: 20050107
  Serious: Yes (Other)
  Sender: FDA-Public Use
  Company Number: PHRM2004FR01902

PATIENT
  Age: 82 Year
  Sex: Female
  Weight: 83 kg

DRUGS (8)
  1. FRACTAL [Suspect]
     Indication: HYPERCHOLESTEROLAEMIA
     Dosage: 40 MG DAILY
     Route: 048
     Dates: start: 20030610, end: 20040514
  2. TRIVASTAL [Concomitant]
     Dosage: 50 MG, QD
     Route: 048
  3. MOLSIDOMINE [Concomitant]
     Dosage: 4 MG, TID
     Route: 048
  4. VERAPAMIL [Concomitant]
     Dosage: 240 MG, QD
     Route: 048
  5. FUROSEMIDE [Concomitant]
     Dosage: 40 MG, BID
     Route: 048
  6. DIFFU K [Concomitant]
     Dosage: 600 MG, BID
     Route: 048
  7. KARDEGIC [Concomitant]
     Dosage: 160 MG, QD
     Route: 048
  8. DAFALGAN [Concomitant]
     Dosage: 2000 MG/DAY
     Route: 048

REACTIONS (5)
  - ALANINE AMINOTRANSFERASE INCREASED [None]
  - ASPARTATE AMINOTRANSFERASE INCREASED [None]
  - ASTHENIA [None]
  - JAUNDICE [None]
  - OCULAR ICTERUS [None]
